FAERS Safety Report 25970899 (Version 1)
Quarter: 2025Q4

REPORT INFORMATION
  Report Type: Spontaneous
  Country: TH (occurrence: TH)
  Receive Date: 20251028
  Receipt Date: 20251028
  Transmission Date: 20260118
  Serious: Yes (Other)
  Sender: NOVARTIS
  Company Number: TH-002147023-NVSC2025TH161609

PATIENT
  Age: 15 Year
  Sex: Male

DRUGS (2)
  1. ELTROMBOPAG OLAMINE [Suspect]
     Active Substance: ELTROMBOPAG OLAMINE
     Indication: Immune thrombocytopenia
     Dosage: 25 MG, QD
     Route: 065
     Dates: start: 20190121
  2. PREDNISOLONE [Concomitant]
     Active Substance: PREDNISOLONE
     Indication: Product used for unknown indication
     Dosage: UNK (4X1)
     Route: 065
     Dates: start: 20190121

REACTIONS (6)
  - Platelet count decreased [Recovered/Resolved]
  - Platelet count decreased [Recovered/Resolved]
  - Ecchymosis [Unknown]
  - Platelet count decreased [Recovered/Resolved]
  - Product dose omission issue [Unknown]
  - Platelet count increased [Unknown]

NARRATIVE: CASE EVENT DATE: 20190208
